FAERS Safety Report 8428771-8 (Version None)
Quarter: 2012Q2

REPORT INFORMATION
  Report Type: 
  Country: None (occurrence: None)
  Receive Date: 20120612
  Receipt Date: 20120604
  Transmission Date: 20120825
  Serious: Yes (Hospitalization)
  Sender: FDA-Public Use
  Company Number: US-BAYER-2012-011010

PATIENT
  Age: 29 Year
  Sex: Female
  Weight: 84 kg

DRUGS (7)
  1. ZOLOFT [Concomitant]
     Dosage: 50 MG, UNK
  2. PERCOCET [Concomitant]
     Indication: PLEURITIC PAIN
  3. VIOXX [Concomitant]
  4. YASMIN [Suspect]
     Indication: PRODUCT USED FOR UNKNOWN INDICATION
     Dosage: UNK
     Dates: start: 20030801, end: 20031212
  5. MORPHINE [Concomitant]
     Indication: PLEURITIC PAIN
  6. SYNTHROID [Concomitant]
     Indication: HYPOTHYROIDISM
     Dosage: 0.025 MG, UNK
     Route: 048
     Dates: start: 19980101
  7. CELEBREX [Concomitant]
     Indication: PLEURITIC PAIN

REACTIONS (9)
  - INJURY [None]
  - DYSPNOEA [None]
  - EMOTIONAL DISTRESS [None]
  - FEAR [None]
  - PULMONARY EMBOLISM [None]
  - BACK PAIN [None]
  - GENERAL PHYSICAL HEALTH DETERIORATION [None]
  - ANHEDONIA [None]
  - ANXIETY [None]
